FAERS Safety Report 18021719 (Version 1)
Quarter: 2020Q3

REPORT INFORMATION
  Report Type: Spontaneous
  Country: SK (occurrence: SK)
  Receive Date: 20200715
  Receipt Date: 20200715
  Transmission Date: 20201103
  Serious: Yes (Hospitalization)
  Sender: FDA-Public Use
  Company Number: SK-BEH-2020120007

PATIENT
  Age: 7 Year
  Sex: Female
  Weight: 30 kg

DRUGS (1)
  1. PRIVIGEN [Suspect]
     Active Substance: HUMAN IMMUNOGLOBULIN G
     Indication: THROMBOCYTOPENIA
     Dosage: 100 MILLILITER, 1 TOT
     Route: 065
     Dates: start: 20200615, end: 20200615

REACTIONS (6)
  - Tachycardia [Recovered/Resolved]
  - Vomiting [Recovered/Resolved]
  - Product use in unapproved indication [Unknown]
  - Hyperpyrexia [Recovered/Resolved]
  - No adverse event [Unknown]
  - Chills [Recovered/Resolved]

NARRATIVE: CASE EVENT DATE: 20200615
